FAERS Safety Report 7526509-X (Version None)
Quarter: 2011Q2

REPORT INFORMATION
  Report Type: 
  Country: None (occurrence: None)
  Receive Date: 20110606
  Receipt Date: 20110601
  Transmission Date: 20111010
  Serious: Yes (Other)
  Sender: FDA-Public Use
  Company Number: US-PFIZER INC-2011118720

PATIENT
  Sex: Female

DRUGS (3)
  1. SOLU-MEDROL [Suspect]
     Dosage: 20 MG, UNK
     Route: 058
  2. COPAXONE [Suspect]
     Indication: MULTIPLE SCLEROSIS
     Dosage: 20 MG, UNK
     Route: 058
     Dates: start: 20100626
  3. PREDNISONE [Suspect]
     Dosage: UNK
     Route: 048

REACTIONS (3)
  - DRUG HYPERSENSITIVITY [None]
  - MULTIPLE SCLEROSIS RELAPSE [None]
  - RENAL INFARCT [None]
